FAERS Safety Report 4713419-6 (Version None)
Quarter: 2005Q3

REPORT INFORMATION
  Report Type: 
  Country: None (occurrence: None)
  Receive Date: 20050711
  Receipt Date: 20050701
  Transmission Date: 20060218
  Serious: Yes (Other)
  Sender: FDA-Public Use
  Company Number: 2005094963

PATIENT
  Age: 68 Year
  Sex: Female

DRUGS (6)
  1. CABERGOLINE [Suspect]
     Indication: PARKINSON'S DISEASE
     Dosage: 3 MG (DAILY), ORAL
     Route: 048
     Dates: start: 20030907
  2. PHYSIOTENS                    (MOXONIDINE) [Suspect]
     Indication: HYPERTENSION
     Dosage: 200 MCG (DAILY), ORAL
     Route: 048
     Dates: start: 20050414, end: 20050415
  3. SERC [Concomitant]
  4. UNIVER                      (VERAPAMIL HYDROCHLORIDE) [Concomitant]
  5. BENDROFLUMETHIAZIDE                   (BENDROFLUMETHIAZIDE) [Concomitant]
  6. POSTMI                        (ACETYLSALICYLIC ACID) [Concomitant]

REACTIONS (7)
  - CONDITION AGGRAVATED [None]
  - DRUG INTERACTION [None]
  - HEADACHE [None]
  - MALAISE [None]
  - PARKINSONIAN REST TREMOR [None]
  - STRESS [None]
  - TREMOR [None]
